FAERS Safety Report 5338939-5 (Version None)
Quarter: 2007Q2

REPORT INFORMATION
  Report Type: 
  Country: None (occurrence: None)
  Receive Date: 20070530
  Receipt Date: 20070518
  Transmission Date: 20071010
  Serious: Yes (Hospitalization)
  Sender: FDA-Public Use
  Company Number: NL-ELI_LILLY_AND_COMPANY-NL200704003803

PATIENT
  Age: 41 Year
  Sex: Male
  Weight: 81 kg

DRUGS (28)
  1. COLCHICINE [Concomitant]
     Dosage: 500 UG, DAILY (1/D)
     Dates: start: 20050101, end: 20060620
  2. COLCHICINE [Concomitant]
     Dosage: 1000 UG, DAILY (1/D)
     Dates: start: 20060621
  3. GLIBENCLAMIDE [Concomitant]
     Dosage: 10 MG, DAILY (1/D)
     Dates: start: 20050408, end: 20070301
  4. GLIBENCLAMIDE [Concomitant]
     Dosage: 5 MG, UNK
     Dates: start: 20070302
  5. GLIBENCLAMIDE [Concomitant]
     Dosage: 15 MG, DAILY (1/D)
     Dates: start: 19910101, end: 20050407
  6. ZOCOR [Concomitant]
     Dosage: 40 MG, DAILY (1/D)
     Dates: start: 20050317
  7. ZOCOR [Concomitant]
     Dosage: 20 MG, DAILY (1/D)
     Dates: start: 19900101, end: 20050317
  8. METOPROLOL SUCCINATE [Concomitant]
     Dosage: 200 MG, DAILY (1/D)
     Dates: start: 20070130
  9. METOPROLOL SUCCINATE [Concomitant]
     Dosage: 100 MG, DAILY (1/D)
     Dates: start: 19850101, end: 20070129
  10. OMEPRAZOLE [Concomitant]
     Dosage: 20 MG, DAILY (1/D)
     Dates: start: 20050317
  11. ADALAT [Concomitant]
     Dosage: 120 MG, DAILY (1/D)
     Dates: start: 20050317
  12. ADALAT [Concomitant]
     Dosage: 60 MG, DAILY (1/D)
     Dates: start: 19850101, end: 20050317
  13. OXAZEPAM [Concomitant]
     Dosage: 10 MG, DAILY (1/D)
     Dates: start: 20060228, end: 20060228
  14. ASCAL [Concomitant]
     Dosage: 38 MG, DAILY (1/D)
     Dates: start: 19850101, end: 20050317
  15. ASCAL [Concomitant]
     Dosage: 100 MG, DAILY (1/D)
     Dates: start: 20050318
  16. EMCOR [Concomitant]
     Dosage: 5 MG, DAILY (1/D)
     Dates: start: 19850101, end: 20050317
  17. HYDROCHLOROTHIAZIDE [Concomitant]
     Dosage: 25 MG, DAILY (1/D)
     Dates: start: 19850101
  18. VASCACE [Concomitant]
     Dosage: 5 MG, DAILY (1/D)
     Dates: start: 19900101
  19. METFORMIN HCL [Concomitant]
     Dosage: 2550 MG, DAILY (1/D)
     Dates: start: 19900101
  20. PREDNISONE TAB [Concomitant]
     Dosage: 10 MG, DAILY (1/D)
     Dates: start: 20060803, end: 20060905
  21. PREDNISONE TAB [Concomitant]
     Dosage: 5 MG, DAILY (1/D)
     Dates: start: 20060906
  22. KENACORT [Concomitant]
     Dosage: 5 MG, DAILY (1/D)
     Dates: start: 20060718, end: 20070515
  23. ALLOPURINOL [Concomitant]
     Dosage: 300 MG, DAILY (1/D)
     Dates: start: 20061113
  24. SOMATROPIN [Suspect]
     Indication: GROWTH HORMONE DEFICIENCY
     Dosage: 0.1 MG, UNK
     Route: 058
     Dates: start: 19980101
  25. TESTIM [Concomitant]
     Indication: SECONDARY HYPOGONADISM
     Dosage: UNK, UNK
     Dates: start: 20050101
  26. MINRIN [Concomitant]
     Indication: DIABETES INSIPIDUS
     Dosage: UNK, UNK
     Dates: start: 19950101
  27. LEVOTHYROXINE SODIUM [Concomitant]
     Indication: SECONDARY HYPOTHYROIDISM
     Dosage: UNK, UNK
     Dates: start: 19950101
  28. HYDROCORTISON [Concomitant]
     Indication: SECONDARY ADRENOCORTICAL INSUFFICIENCY
     Dosage: UNK, UNK
     Dates: start: 19950101

REACTIONS (1)
  - SECONDARY ADRENOCORTICAL INSUFFICIENCY [None]
